FAERS Safety Report 14654024 (Version 3)
Quarter: 2018Q2

REPORT INFORMATION
  Report Type: Spontaneous
  Country: US (occurrence: US)
  Receive Date: 20180319
  Receipt Date: 20180521
  Transmission Date: 20180711
  Serious: No
  Sender: FDA-Public Use
  Company Number: US-PFIZER INC-2018066159

PATIENT
  Age: 73 Year
  Sex: Male
  Weight: 67.12 kg

DRUGS (7)
  1. PREDNISONE. [Concomitant]
     Active Substance: PREDNISONE
     Indication: HYPOTHALAMO-PITUITARY DISORDER
     Dosage: 2.5 MG, 1X/DAY
     Route: 048
     Dates: start: 1993
  2. GENOTROPIN [Suspect]
     Active Substance: SOMATROPIN
     Indication: HYPOTHALAMO-PITUITARY DISORDER
     Dosage: 0.2 MG, 1X/DAY
  3. METOPROLOL SUCCINATE. [Concomitant]
     Active Substance: METOPROLOL SUCCINATE
     Indication: HEART VALVE INCOMPETENCE
     Dosage: 25 MG, 2X/DAY
     Route: 048
     Dates: start: 1993
  4. GENOTROPIN [Suspect]
     Active Substance: SOMATROPIN
     Indication: HORMONE REPLACEMENT THERAPY
  5. LEVOTHYROXINE. [Concomitant]
     Active Substance: LEVOTHYROXINE
     Indication: HYPOTHALAMO-PITUITARY DISORDER
     Dosage: 0.075 MG, 1X/DAY
     Route: 048
     Dates: start: 1993
  6. METOPROLOL SUCCINATE. [Concomitant]
     Active Substance: METOPROLOL SUCCINATE
     Indication: HEART RATE DECREASED
  7. ANDROGEL [Concomitant]
     Active Substance: TESTOSTERONE
     Indication: HYPOTHALAMO-PITUITARY DISORDER
     Dosage: 2 PUMPS, DAILY

REACTIONS (4)
  - Laryngitis [Recovering/Resolving]
  - Device issue [Unknown]
  - Drug dose omission [Unknown]
  - Nasopharyngitis [Recovering/Resolving]

NARRATIVE: CASE EVENT DATE: 20180212
